FAERS Safety Report 5166782-9 (Version None)
Quarter: 2006Q4

REPORT INFORMATION
  Report Type: 
  Country: None (occurrence: None)
  Receive Date: 20061129
  Receipt Date: 20061114
  Transmission Date: 20070319
  Serious: Yes (Hospitalization)
  Sender: FDA-Public Use
  Company Number: 2006-150508-NL

PATIENT
  Age: 37 Year
  Sex: Female
  Weight: 90.7 kg

DRUGS (4)
  1. NUVARING [Suspect]
     Indication: UTERINE LEIOMYOMA
     Dosage: VAGINAL, 3 WKS IN, 1 WK OUT
     Route: 067
     Dates: start: 20060401, end: 20060901
  2. WELLBUTRIN [Concomitant]
  3. ZOLOFT [Concomitant]
  4. AMBIEN [Concomitant]

REACTIONS (2)
  - PNEUMONIA [None]
  - PULMONARY EMBOLISM [None]
